FAERS Safety Report 15334044 (Version 1)
Quarter: 2018Q3

REPORT INFORMATION
  Report Type: Spontaneous
  Country: US (occurrence: US)
  Receive Date: 20180827
  Receipt Date: 20180827
  Transmission Date: 20181010
  Serious: Yes (Other)
  Sender: FDA-Public Use
  Company Number: None

PATIENT
  Age: 69 Year
  Sex: Male

DRUGS (1)
  1. ENTECAVIR. [Suspect]
     Active Substance: ENTECAVIR
     Indication: PRODUCT USED FOR UNKNOWN INDICATION
     Route: 048
     Dates: start: 20180821

REACTIONS (6)
  - Insomnia [None]
  - Constipation [None]
  - Tremor [None]
  - Testicular pain [None]
  - Somnolence [None]
  - Dyspnoea [None]

NARRATIVE: CASE EVENT DATE: 20180821
